FAERS Safety Report 9122720 (Version 1)
Quarter: 2013Q1

REPORT INFORMATION
  Report Type: Report from Study
  Country: DE (occurrence: DE)
  Receive Date: 20130115
  Receipt Date: 20130115
  Transmission Date: 20140127
  Serious: Yes (Other)
  Sender: FDA-Public Use
  Company Number: DE-ABBOTT-13P-062-1035363-00

PATIENT
  Age: 42 Year
  Sex: Male

DRUGS (1)
  1. KALETRA [Suspect]
     Indication: HIV INFECTION
     Dates: start: 20070917

REACTIONS (5)
  - Alcohol withdrawal syndrome [Unknown]
  - Alcoholism [Unknown]
  - Alcoholism [Unknown]
  - Pruritus [Unknown]
  - Anxiety [Unknown]
